FAERS Safety Report 8856887 (Version 1)
Quarter: 2012Q4

REPORT INFORMATION
  Report Type: 
  Country: US (occurrence: US)
  Receive Date: 20121023
  Receipt Date: 20121023
  Transmission Date: 20130627
  Serious: No
  Sender: FDA-Public Use
  Company Number: US-AMGEN-USASP2012055661

PATIENT
  Age: 58 Year
  Sex: Female
  Weight: 98.41 kg

DRUGS (15)
  1. ENBREL [Suspect]
     Indication: PRODUCT USED FOR UNKNOWN INDICATION
     Dosage: 50 mg, qwk
     Route: 058
  2. PLAQUENIL                          /00072603/ [Concomitant]
     Dosage: 200 mg, UNK
  3. LOPRESSOR [Concomitant]
     Dosage: 50 mg, UNK
  4. TYLENOL /00020001/ [Concomitant]
     Dosage: UNK
  5. AMLODIPINE [Concomitant]
     Dosage: 5 mg, UNK
  6. PREDNISON [Concomitant]
     Dosage: 2.5 mg, UNK
  7. NEURONTIN [Concomitant]
     Dosage: 100 mg, UNK
  8. METFORMIN [Concomitant]
     Dosage: 500 mg, UNK
  9. PRILOSEC                           /00661201/ [Concomitant]
     Dosage: 10 mg, UNK
  10. FLEXERIL                           /00428402/ [Concomitant]
     Dosage: 5 mg, UNK
  11. FOLIC ACID [Concomitant]
     Dosage: UNK
  12. LORTAB                             /00607101/ [Concomitant]
     Dosage: 5-500 mg, UNK
  13. MAXZIDE [Concomitant]
     Dosage: 25 UNK, UNK
  14. METHOTREXATE [Concomitant]
     Dosage: 25 mg, UNK
  15. POTASSIUM CHLORIDE [Concomitant]
     Dosage: 10 MEQ CR, UNK

REACTIONS (4)
  - Dysphonia [Unknown]
  - Muscle spasms [Unknown]
  - Hyperhidrosis [Unknown]
  - Musculoskeletal stiffness [Unknown]
